FAERS Safety Report 17959214 (Version 1)
Quarter: 2020Q2

REPORT INFORMATION
  Report Type: Report from Study
  Country: CN (occurrence: CN)
  Receive Date: 20200629
  Receipt Date: 20200629
  Transmission Date: 20200714
  Serious: Yes (Hospitalization)
  Sender: FDA-Public Use
  Company Number: CN-ELI_LILLY_AND_COMPANY-CN202006007407

PATIENT
  Sex: Male

DRUGS (1)
  1. INSULIN, LISPRO [Suspect]
     Active Substance: INSULIN LISPRO
     Indication: DIABETES MELLITUS
     Dosage: UNK UNK, UNKNOWN
     Route: 058

REACTIONS (7)
  - Renal impairment [Unknown]
  - Gait inability [Unknown]
  - Oedema [Unknown]
  - Cardiac disorder [Unknown]
  - Hypertension [Unknown]
  - Asthenia [Unknown]
  - Blood glucose increased [Unknown]
